FAERS Safety Report 23344703 (Version 1)
Quarter: 2023Q4

REPORT INFORMATION
  Report Type: Other
  Country: US (occurrence: None)
  Receive Date: 20231228
  Receipt Date: 20231228
  Transmission Date: 20240110
  Serious: Yes (Life-Threatening)
  Sender: FDA-Public Use
  Company Number: US-ROCHE-3477142

PATIENT
  Age: 31 Year
  Sex: Male

DRUGS (4)
  1. RITUXIMAB [Suspect]
     Active Substance: RITUXIMAB
     Indication: Haematuria
     Route: 065
     Dates: start: 20220422
  2. RITUXIMAB [Suspect]
     Active Substance: RITUXIMAB
     Indication: Glomerulonephritis membranous
  3. RITUXIMAB [Suspect]
     Active Substance: RITUXIMAB
     Indication: Biopsy
  4. RITUXIMAB [Suspect]
     Active Substance: RITUXIMAB
     Indication: Glomerulonephritis membranous

REACTIONS (10)
  - Drug hypersensitivity [Unknown]
  - Pruritus [Unknown]
  - Throat irritation [Unknown]
  - Erythema [Unknown]
  - Urticaria [Unknown]
  - Dysphagia [Unknown]
  - Dyspnoea [Unknown]
  - Peripheral swelling [Unknown]
  - Oedema [Unknown]
  - Off label use [Unknown]

NARRATIVE: CASE EVENT DATE: 20220422
